FAERS Safety Report 4765852-4 (Version None)
Quarter: 2005Q3

REPORT INFORMATION
  Report Type: 
  Country: None (occurrence: None)
  Receive Date: 20050906
  Receipt Date: 20050831
  Transmission Date: 20060218
  Serious: Yes (Hospitalization)
  Sender: FDA-Public Use
  Company Number: 200512709GDS

PATIENT
  Age: 83 Year
  Sex: Male

DRUGS (1)
  1. MOXIFLOXACIN HCL [Suspect]

REACTIONS (1)
  - COLITIS [None]
